FAERS Safety Report 6647705-X (Version None)
Quarter: 2010Q1

REPORT INFORMATION
  Report Type: 
  Country: None (occurrence: None)
  Receive Date: 20100323
  Receipt Date: 20100323
  Transmission Date: 20100710
  Serious: Yes (Life-Threatening, Hospitalization, Disabling)
  Sender: FDA-Public Use
  Company Number: None

PATIENT
  Sex: Female
  Weight: 53.5244 kg

DRUGS (2)
  1. FOSAMAX [Suspect]
     Indication: OSTEOPOROSIS PROPHYLAXIS
     Dosage: 70MG ONCE A WEEK ORAL
     Route: 048
     Dates: start: 19910101, end: 20080601
  2. BONIVA [Suspect]
     Indication: OSTEOPENIA
     Dosage: 150 MG ONCE A MONTH ORAL
     Route: 048
     Dates: start: 20090101, end: 20090701

REACTIONS (9)
  - ARRHYTHMIA [None]
  - ARTHRALGIA [None]
  - BACK PAIN [None]
  - FALL [None]
  - FEMUR FRACTURE [None]
  - PAIN IN EXTREMITY [None]
  - PALPITATIONS [None]
  - PARAESTHESIA [None]
  - STRESS FRACTURE [None]
